FAERS Safety Report 9753845 (Version 2)
Quarter: 2014Q1

REPORT INFORMATION
  Report Type: Spontaneous
  Country: AR (occurrence: AR)
  Receive Date: 20131213
  Receipt Date: 20140220
  Transmission Date: 20141002
  Serious: Yes (Other)
  Sender: FDA-Public Use
  Company Number: AR-AMGEN-ARGSP2013087459

PATIENT
  Age: 48 Year
  Sex: Female

DRUGS (6)
  1. ENBREL [Suspect]
     Indication: RHEUMATOID ARTHRITIS
     Dosage: 50 MG, WEEKLY
     Route: 058
     Dates: start: 20120102
  2. METHOTREXATE SODIUM [Suspect]
     Indication: RHEUMATOID ARTHRITIS
     Dosage: UNK
     Route: 065
     Dates: start: 2012, end: 201306
  3. LEVOTHYROXINE [Concomitant]
     Indication: HYPOTHYROIDISM
     Dosage: 100 UG, 1X/DAY
  4. ESCITALOPRAM [Concomitant]
     Dosage: 20 MG, 1X/DAY
  5. RIVOTRIL [Concomitant]
     Dosage: 1 MG, 1X/DAY
  6. CALCIUM [Concomitant]
     Dosage: UNK

REACTIONS (5)
  - Haemorrhage [Not Recovered/Not Resolved]
  - Platelet adhesiveness abnormal [Not Recovered/Not Resolved]
  - Pain in extremity [Recovering/Resolving]
  - Laboratory test abnormal [Recovering/Resolving]
  - Irritable bowel syndrome [Recovered/Resolved]
